FAERS Safety Report 22385154 (Version 6)
Quarter: 2025Q2

REPORT INFORMATION
  Report Type: Spontaneous
  Country: US (occurrence: US)
  Receive Date: 20230530
  Receipt Date: 20250418
  Transmission Date: 20250717
  Serious: No
  Sender: PFIZER
  Company Number: US-PFIZER INC-PV202300082462

PATIENT
  Age: 73 Year
  Sex: Female
  Weight: 84 kg

DRUGS (2)
  1. IBRANCE [Suspect]
     Active Substance: PALBOCICLIB
     Indication: Breast cancer metastatic
     Route: 048
     Dates: start: 20220804
  2. LETROZOLE [Concomitant]
     Active Substance: LETROZOLE
     Dates: start: 20220804

REACTIONS (2)
  - Urticaria [Unknown]
  - Vomiting [Unknown]
